FAERS Safety Report 4956466-1 (Version None)
Quarter: 2006Q1

REPORT INFORMATION
  Report Type: 
  Country: None (occurrence: None)
  Receive Date: 20060328
  Receipt Date: 20060328
  Transmission Date: 20060701
  Serious: Yes (Other)
  Sender: FDA-Public Use
  Company Number: None

PATIENT
  Age: 44 Year
  Sex: Female
  Weight: 70.3075 kg

DRUGS (2)
  1. LEVAQUIN [Suspect]
     Indication: RESPIRATORY TRACT INFECTION
     Dosage: 1 PILL PER DAY PO
     Route: 048
     Dates: start: 20060319, end: 20060325
  2. LEVAQUIN [Suspect]
     Indication: SINUSITIS
     Dosage: 1 PILL PER DAY PO
     Route: 048
     Dates: start: 20060319, end: 20060325

REACTIONS (3)
  - ARTHRALGIA [None]
  - DISCOMFORT [None]
  - JOINT STIFFNESS [None]
